FAERS Safety Report 4354426-5 (Version None)
Quarter: 2004Q2

REPORT INFORMATION
  Report Type: 
  Country: None (occurrence: None)
  Receive Date: 20040503
  Receipt Date: 20040421
  Transmission Date: 20050107
  Serious: Yes (Life-Threatening, Hospitalization, Disabling, Other)
  Sender: FDA-Public Use
  Company Number: 2004020327

PATIENT
  Age: 53 Year
  Sex: Male

DRUGS (3)
  1. ZITHROMAX [Suspect]
     Indication: SEXUALLY TRANSMITTED DISEASE
     Dosage: ORAL
     Route: 048
     Dates: start: 20040314, end: 20040301
  2. PROSULTIAMINE (PROSULTIAMINE) [Suspect]
     Indication: ILL-DEFINED DISORDER
     Dosage: ORAL
     Route: 048
  3. PABRON (CAFFEINE, CARBINOXAMINE MALEATE, DEXTROMETHORPHAN HYDROBROMIDE [Suspect]
     Indication: ILL-DEFINED DISORDER
     Dosage: ORAL
     Route: 048

REACTIONS (10)
  - APALLIC SYNDROME [None]
  - BLOOD PRESSURE DECREASED [None]
  - DYSPNOEA [None]
  - HYPOXIC ENCEPHALOPATHY [None]
  - INJURY ASPHYXIATION [None]
  - LARYNGEAL OEDEMA [None]
  - LOSS OF CONSCIOUSNESS [None]
  - PHARYNGEAL OEDEMA [None]
  - PULSE ABSENT [None]
  - SINUS TACHYCARDIA [None]
